FAERS Safety Report 5837733-6 (Version None)
Quarter: 2008Q3

REPORT INFORMATION
  Report Type: 
  Country: None (occurrence: None)
  Receive Date: 20080807
  Receipt Date: 20080805
  Transmission Date: 20090109
  Serious: Yes (Other)
  Sender: FDA-Public Use
  Company Number: GB-MERCK-0808GBR00020

PATIENT
  Age: 75 Year
  Sex: Male
  Weight: 73 kg

DRUGS (14)
  1. ZOCOR [Suspect]
     Indication: HYPERCHOLESTEROLAEMIA
     Route: 048
     Dates: start: 20080401, end: 20080711
  2. ALFACALCIDOL [Concomitant]
     Route: 048
  3. ASPIRIN [Concomitant]
     Route: 048
  4. BISOPROLOL [Concomitant]
     Route: 048
  5. CHLORPHENIRAMINE MALEATE [Concomitant]
     Route: 048
  6. ZETIA [Concomitant]
     Route: 048
  7. FYBOGEL [Concomitant]
     Route: 048
  8. NITROGLYCERIN [Concomitant]
     Route: 048
  9. ISOSORBIDE MONONITRATE [Concomitant]
     Route: 048
  10. LACTULOSE [Concomitant]
     Route: 048
  11. ACETAMINOPHEN [Concomitant]
     Route: 048
  12. QUININE SULFATE [Concomitant]
     Route: 048
  13. SENNA [Concomitant]
     Route: 048
  14. SEVELAMER HYDROCHLORIDE [Concomitant]
     Route: 048

REACTIONS (3)
  - BLOOD CREATINE PHOSPHOKINASE INCREASED [None]
  - BLOOD CREATININE INCREASED [None]
  - RED BLOOD CELL SEDIMENTATION RATE INCREASED [None]
